FAERS Safety Report 14632036 (Version 5)
Quarter: 2019Q1

REPORT INFORMATION
  Report Type: Report from Study
  Country: CA (occurrence: CA)
  Receive Date: 20180313
  Receipt Date: 20190305
  Transmission Date: 20190417
  Serious: Yes (Other)
  Sender: FDA-Public Use
  Company Number: CA-BRISTOL-MYERS SQUIBB COMPANY-BMS-2017-044966

PATIENT
  Age: 61 Year
  Sex: Female

DRUGS (2)
  1. ABATACEPT [Suspect]
     Active Substance: ABATACEPT
     Indication: RHEUMATOID ARTHRITIS
     Dosage: 750 MG, Q4WK
     Route: 042
  2. ABATACEPT [Suspect]
     Active Substance: ABATACEPT
     Indication: PRODUCT USED FOR UNKNOWN INDICATION
     Dosage: 1000 MG, Q4WK
     Route: 042
     Dates: start: 20130719

REACTIONS (20)
  - Stress [Unknown]
  - Hand fracture [Unknown]
  - Pulmonary oedema [Recovered/Resolved]
  - Hypoaesthesia [Unknown]
  - Diarrhoea [Recovering/Resolving]
  - Rheumatoid arthritis [Recovering/Resolving]
  - Foot deformity [Unknown]
  - Tendon injury [Unknown]
  - Lower respiratory tract infection [Unknown]
  - Fall [Unknown]
  - Musculoskeletal pain [Unknown]
  - Joint swelling [Recovered/Resolved]
  - Blood pressure increased [Unknown]
  - Emotional disorder [Unknown]
  - Pneumonia [Recovered/Resolved]
  - Pain [Unknown]
  - Cough [Recovered/Resolved]
  - Anxiety [Unknown]
  - Muscle spasms [Unknown]
  - Spinal osteoarthritis [Unknown]

NARRATIVE: CASE EVENT DATE: 20170428
